FAERS Safety Report 4655444-X (Version None)
Quarter: 2005Q2

REPORT INFORMATION
  Report Type: 
  Country: None (occurrence: None)
  Receive Date: 20050505
  Receipt Date: 20050415
  Transmission Date: 20051028
  Serious: Yes (Hospitalization, Other)
  Sender: FDA-Public Use
  Company Number: USA050495757

PATIENT
  Age: 80 Year
  Sex: Female

DRUGS (2)
  1. FORTEO [Suspect]
     Dates: start: 20040801
  2. BEXTRA [Concomitant]

REACTIONS (3)
  - COLON OPERATION [None]
  - PHARMACEUTICAL PRODUCT COMPLAINT [None]
  - POSTOPERATIVE INFECTION [None]
